FAERS Safety Report 24414254 (Version 4)
Quarter: 2025Q1

REPORT INFORMATION
  Report Type: Report from Study
  Country: US (occurrence: US)
  Receive Date: 20241009
  Receipt Date: 20250110
  Transmission Date: 20250408
  Serious: Yes (Other)
  Sender: ABBVIE
  Company Number: US-ABBVIE-5953827

PATIENT
  Age: 62 Year
  Sex: Male

DRUGS (2)
  1. HUMIRA [Suspect]
     Active Substance: ADALIMUMAB
     Indication: Crohn^s disease
     Route: 058
     Dates: start: 20210505
  2. HUMIRA [Suspect]
     Active Substance: ADALIMUMAB
     Route: 058

REACTIONS (10)
  - Cardiac dysfunction [Unknown]
  - Blood iron decreased [Recovering/Resolving]
  - Fatigue [Not Recovered/Not Resolved]
  - Full blood count decreased [Unknown]
  - General physical health deterioration [Unknown]
  - Malabsorption [Recovering/Resolving]
  - Infection [Not Recovered/Not Resolved]
  - Fistula [Not Recovered/Not Resolved]
  - Abscess [Not Recovered/Not Resolved]
  - Investigation abnormal [Not Recovered/Not Resolved]

NARRATIVE: CASE EVENT DATE: 20230701
